FAERS Safety Report 4599397-1 (Version None)
Quarter: 2005Q1

REPORT INFORMATION
  Report Type: 
  Country: None (occurrence: None)
  Receive Date: 20050303
  Receipt Date: 20050303
  Transmission Date: 20050727
  Serious: Yes (Life-Threatening)
  Sender: FDA-Public Use
  Company Number: None

PATIENT
  Age: 53 Year
  Sex: Female
  Weight: 54 kg

DRUGS (9)
  1. LEVETIRACETAM [Suspect]
     Indication: CONVULSION
     Dosage: 1000MG   BID   ORAL
     Route: 048
     Dates: start: 20041230, end: 20050101
  2. VIOKASE [Concomitant]
  3. ASPIRIN [Concomitant]
  4. IRON SULFATETHIAMIN COMPOUND TAB [Concomitant]
  5. FOLIC ACID [Concomitant]
  6. PHENOBARBITAL [Concomitant]
  7. THIAMINE [Concomitant]
  8. ACETAMINOPHEN [Concomitant]
  9. HYDROCODONE BITARTRATE + ACETAMINOPHEN [Concomitant]

REACTIONS (4)
  - ASTHENIA [None]
  - HEMIPARESIS [None]
  - PANCYTOPENIA [None]
  - SYNCOPE [None]
